FAERS Safety Report 24322983 (Version 1)
Quarter: 2024Q3

REPORT INFORMATION
  Report Type: Spontaneous
  Country: US (occurrence: None)
  Receive Date: 20240913
  Receipt Date: 20240913
  Transmission Date: 20241017
  Serious: Yes (unspecified)
  Sender: Public
  Company Number: None

PATIENT
  Age: 8 Year
  Sex: Female
  Weight: 16.8 kg

DRUGS (1)
  1. ASPARLAS [Suspect]
     Active Substance: CALASPARGASE PEGOL-MKNL
     Indication: B-cell type acute leukaemia
     Dosage: 1800 IU INTERNATIONAL UNIT(S) PER PROTOCOL INTRAVENOUS?
     Route: 042
     Dates: start: 20240312, end: 20240312

REACTIONS (4)
  - Nausea [None]
  - Urticaria [None]
  - Vomiting [None]
  - Ocular hyperaemia [None]

NARRATIVE: CASE EVENT DATE: 20240312
